FAERS Safety Report 5506169-X (Version None)
Quarter: 2007Q4

REPORT INFORMATION
  Report Type: 
  Country: None (occurrence: None)
  Receive Date: 20071101
  Receipt Date: 20071101
  Transmission Date: 20080405
  Serious: Yes (Hospitalization)
  Sender: FDA-Public Use
  Company Number: None

PATIENT
  Age: 9 Year
  Sex: Male
  Weight: 29.4838 kg

DRUGS (7)
  1. ABILIFY [Suspect]
     Indication: ATTENTION DEFICIT/HYPERACTIVITY DISORDER
     Dosage: 1X2 A DAY
     Dates: start: 20040202, end: 20040203
  2. ABILIFY [Suspect]
     Indication: BIPOLAR DISORDER
     Dosage: 1X2 A DAY
     Dates: start: 20040202, end: 20040203
  3. ABILIFY [Suspect]
     Indication: DEPRESSION
     Dosage: 1X2 A DAY
     Dates: start: 20040202, end: 20040203
  4. ABILIFY [Suspect]
     Indication: MANIA
     Dosage: 1X2 A DAY
     Dates: start: 20040202, end: 20040203
  5. REMERON [Suspect]
     Indication: OBSESSIVE-COMPULSIVE DISORDER
     Dosage: 1X2DAYS
     Dates: start: 20040202, end: 20040204
  6. CONCERTA [Concomitant]
  7. STRATTERA [Concomitant]

REACTIONS (8)
  - APHASIA [None]
  - DYSPNOEA [None]
  - JOINT CONTRACTURE [None]
  - MOUTH INJURY [None]
  - MUSCLE SPASMS [None]
  - MUSCULOSKELETAL STIFFNESS [None]
  - RESPIRATORY ARREST [None]
  - TRISMUS [None]
